FAERS Safety Report 4926418-6 (Version None)
Quarter: 2006Q1

REPORT INFORMATION
  Report Type: 
  Country: None (occurrence: None)
  Receive Date: 20060228
  Receipt Date: 20051116
  Transmission Date: 20060701
  Serious: No
  Sender: FDA-Public Use
  Company Number: US-GLAXOSMITHKLINE-A0582591A

PATIENT
  Age: 30 Year
  Sex: Female

DRUGS (11)
  1. LAMICTAL [Suspect]
     Indication: EPILEPSY
     Dosage: 50MG PER DAY
     Route: 048
  2. DEPAKOTE [Suspect]
  3. PAXIL [Concomitant]
  4. LOTRONEX [Concomitant]
  5. THYROID TAB [Concomitant]
  6. GAS X [Concomitant]
  7. TYLENOL (CAPLET) [Concomitant]
  8. MULTI-VITAMIN [Concomitant]
  9. GLUCOSAMINE [Concomitant]
  10. POTASSIUM [Concomitant]
  11. TEGRETOL [Concomitant]

REACTIONS (1)
  - OBSESSIVE-COMPULSIVE DISORDER [None]
